FAERS Safety Report 23461972 (Version 2)
Quarter: 2024Q1

REPORT INFORMATION
  Report Type: Spontaneous
  Country: JP (occurrence: JP)
  Receive Date: 20240131
  Receipt Date: 20240209
  Transmission Date: 20240409
  Serious: Yes (Hospitalization)
  Sender: FDA-Public Use
  Company Number: JP-Eisai-202310729_DVG_P_1

PATIENT
  Sex: Female

DRUGS (2)
  1. DAYVIGO [Suspect]
     Active Substance: LEMBOREXANT
     Indication: Product used for unknown indication
     Dosage: DOSE UNKNOWN
     Route: 048
  2. DAYVIGO [Suspect]
     Active Substance: LEMBOREXANT
     Dosage: DOSE REDUCED
     Route: 048

REACTIONS (2)
  - Fracture [Unknown]
  - Nightmare [Recovered/Resolved]

NARRATIVE: CASE EVENT DATE: 20231115
